FAERS Safety Report 5309548-9 (Version None)
Quarter: 2007Q2

REPORT INFORMATION
  Report Type: 
  Country: None (occurrence: None)
  Receive Date: 20070427
  Receipt Date: 20061116
  Transmission Date: 20071010
  Serious: No
  Sender: FDA-Public Use
  Company Number: US-GLAXOSMITHKLINE-A0627825A

PATIENT
  Sex: Female

DRUGS (5)
  1. DEXTROAMPHETAMINE SULFATE [Suspect]
     Dosage: 5MG FOUR TIMES PER DAY
     Route: 048
  2. WELLBUTRIN SR [Suspect]
     Route: 048
     Dates: start: 19950101
  3. DEXEDRINE [Concomitant]
  4. AMBIEN [Concomitant]
  5. PRILOSEC [Concomitant]

REACTIONS (3)
  - DIARRHOEA [None]
  - HEADACHE [None]
  - NAUSEA [None]
